FAERS Safety Report 13051130 (Version 2)
Quarter: 2017Q1

REPORT INFORMATION
  Report Type: Spontaneous
  Country: US (occurrence: US)
  Receive Date: 20161221
  Receipt Date: 20170224
  Transmission Date: 20170428
  Serious: Yes (Other)
  Sender: FDA-Public Use
  Company Number: US-PFIZER INC-2016591550

PATIENT
  Sex: Male
  Weight: 86 kg

DRUGS (2)
  1. PROTONIX [Suspect]
     Active Substance: PANTOPRAZOLE SODIUM
     Indication: ABDOMINAL PAIN UPPER
     Dosage: UNK
     Route: 048
  2. LATUDA [Concomitant]
     Active Substance: LURASIDONE HYDROCHLORIDE
     Dosage: 80 MG, UNK
     Route: 048

REACTIONS (11)
  - Cognitive disorder [Not Recovered/Not Resolved]
  - Atrophy [Unknown]
  - Muscle atrophy [Unknown]
  - Brain injury [Unknown]
  - Memory impairment [Not Recovered/Not Resolved]
  - Change of bowel habit [Unknown]
  - Depression [Unknown]
  - Tendonitis [Unknown]
  - Psychotic disorder [Unknown]
  - Malabsorption [Unknown]
  - Skin disorder [Unknown]

NARRATIVE: CASE EVENT DATE: 2016
